FAERS Safety Report 5352291-0 (Version None)
Quarter: 2007Q2

REPORT INFORMATION
  Report Type: 
  Country: None (occurrence: None)
  Receive Date: 20070611
  Receipt Date: 20070604
  Transmission Date: 20071010
  Serious: Yes (Death, Life-Threatening, Other)
  Sender: FDA-Public Use
  Company Number: US-PURDUE-USA_2004_0013519

PATIENT
  Age: 19 Year
  Sex: Male
  Weight: 100 kg

DRUGS (9)
  1. XANAX [Suspect]
     Indication: DRUG ABUSER
  2. MARIJUANA [Suspect]
     Indication: DRUG ABUSER
  3. VICODIN [Suspect]
     Indication: DRUG ABUSER
  4. COCAINE [Suspect]
     Indication: DRUG ABUSER
  5. HEROIN [Suspect]
     Indication: DRUG ABUSER
  6. ANTIHISTAMINES FOR SYSTEMIC USE [Suspect]
     Indication: DRUG ABUSER
  7. AMPHETAMINE SULFATE [Suspect]
     Indication: DRUG ABUSER
  8. PHENYLPROPANOLAMINE [Suspect]
     Indication: DRUG ABUSER
  9. OXYCONTIN [Suspect]
     Indication: DRUG ABUSER

REACTIONS (3)
  - MULTIPLE DRUG OVERDOSE ACCIDENTAL [None]
  - ORGAN FAILURE [None]
  - SUBSTANCE ABUSE [None]
